FAERS Safety Report 7301883-8 (Version None)
Quarter: 2011Q1

REPORT INFORMATION
  Report Type: 
  Country: None (occurrence: None)
  Receive Date: 20110218
  Receipt Date: 20110210
  Transmission Date: 20110831
  Serious: Yes (Life-Threatening, Other)
  Sender: FDA-Public Use
  Company Number: JP-ROCHE-754875

PATIENT
  Sex: Male
  Weight: 51 kg

DRUGS (15)
  1. CARBOPLATIN [Suspect]
     Route: 041
     Dates: start: 20101014, end: 20101014
  2. AVASTIN [Suspect]
     Route: 041
     Dates: start: 20101116, end: 20101116
  3. CARBOPLATIN [Suspect]
     Route: 041
     Dates: start: 20101116, end: 20101116
  4. AVASTIN [Suspect]
     Route: 041
     Dates: start: 20101216, end: 20101216
  5. CARBOPLATIN [Suspect]
     Indication: LUNG ADENOCARCINOMA RECURRENT
     Route: 041
     Dates: start: 20100817, end: 20100817
  6. CARBOPLATIN [Suspect]
     Route: 041
     Dates: start: 20100914, end: 20100914
  7. CARBOPLATIN [Suspect]
     Route: 041
     Dates: start: 20101216, end: 20101216
  8. PACLITAXEL [Suspect]
     Route: 041
     Dates: start: 20101116, end: 20101116
  9. PACLITAXEL [Suspect]
     Route: 041
     Dates: start: 20100914, end: 20100914
  10. PACLITAXEL [Suspect]
     Route: 041
     Dates: start: 20101014, end: 20101014
  11. AVASTIN [Suspect]
     Indication: LUNG ADENOCARCINOMA RECURRENT
     Route: 041
     Dates: start: 20100817, end: 20100817
  12. AVASTIN [Suspect]
     Route: 041
     Dates: start: 20101014, end: 20101014
  13. PACLITAXEL [Suspect]
     Indication: LUNG ADENOCARCINOMA RECURRENT
     Route: 041
     Dates: start: 20100817, end: 20100817
  14. PACLITAXEL [Suspect]
     Route: 041
     Dates: start: 20101216, end: 20101216
  15. AVASTIN [Suspect]
     Route: 041
     Dates: start: 20100914, end: 20100914

REACTIONS (4)
  - INTERSTITIAL LUNG DISEASE [None]
  - PLATELET COUNT DECREASED [None]
  - HAEMOPTYSIS [None]
  - HYPERTENSION [None]
